FAERS Safety Report 5133100-1 (Version None)
Quarter: 2006Q4

REPORT INFORMATION
  Report Type: 
  Country: None (occurrence: None)
  Receive Date: 20061018
  Receipt Date: 20061006
  Transmission Date: 20070319
  Serious: Yes (Hospitalization, Other)
  Sender: FDA-Public Use
  Company Number: 2006125395

PATIENT
  Age: 43 Year
  Sex: Male

DRUGS (9)
  1. PREDNISOLONE [Suspect]
     Indication: BURKITT'S LYMPHOMA
     Dosage: CYCLICAL
  2. HYDROCORTISONE [Suspect]
     Indication: BURKITT'S LYMPHOMA
     Dosage: CYCLICAL
  3. CYCLOPHOSPHAMIDE [Concomitant]
  4. CYTARABINE [Concomitant]
  5. DOXORUBICIN HCL [Concomitant]
  6. METHOTREXATE [Concomitant]
  7. RITONAVIR (RITONAVIR) [Concomitant]
  8. SAQUINAVIR (SAQUINAVIR) [Concomitant]
  9. VINCRISTINE [Concomitant]

REACTIONS (4)
  - OSTEONECROSIS [None]
  - OSTEOPOROSIS [None]
  - PAIN IN EXTREMITY [None]
  - SPINAL COMPRESSION FRACTURE [None]
